FAERS Safety Report 15095996 (Version 1)
Quarter: 2018Q3

REPORT INFORMATION
  Report Type: Spontaneous
  Country: DK (occurrence: DK)
  Receive Date: 20180702
  Receipt Date: 20180702
  Transmission Date: 20181010
  Serious: Yes (Disabling)
  Sender: FDA-Public Use
  Company Number: DK-FERRINGPH-2017FE01312

PATIENT

DRUGS (2)
  1. LUTINUS [Suspect]
     Active Substance: PROGESTERONE
     Indication: ASSISTED FERTILISATION
     Dosage: UNK
     Route: 067
     Dates: start: 20150608, end: 20150611
  2. LUTINUS [Suspect]
     Active Substance: PROGESTERONE
     Dosage: UNK
     Route: 067
     Dates: start: 20141129, end: 20141212

REACTIONS (10)
  - Subcutaneous abscess [Not Recovered/Not Resolved]
  - Pyelonephritis [Not Recovered/Not Resolved]
  - Urinary tract infection [Not Recovered/Not Resolved]
  - Autoimmune dermatitis [Not Recovered/Not Resolved]
  - Hypersensitivity [Not Recovered/Not Resolved]
  - Blister [Not Recovered/Not Resolved]
  - Nodule [Not Recovered/Not Resolved]
  - Rosacea [Not Recovered/Not Resolved]
  - Rash pruritic [Not Recovered/Not Resolved]
  - Papule [Not Recovered/Not Resolved]

NARRATIVE: CASE EVENT DATE: 201412
